FAERS Safety Report 7281854-0 (Version None)
Quarter: 2011Q1

REPORT INFORMATION
  Report Type: 
  Country: None (occurrence: None)
  Receive Date: 20110208
  Receipt Date: 20110131
  Transmission Date: 20110831
  Serious: Yes (Hospitalization, Disabling)
  Sender: FDA-Public Use
  Company Number: PHHO2011GB02247

PATIENT
  Sex: Female
  Weight: 38.95 kg

DRUGS (1)
  1. GLEEVEC [Suspect]
     Indication: ACUTE LYMPHOCYTIC LEUKAEMIA
     Dosage: 300 MG, UNK
     Route: 048

REACTIONS (7)
  - SPINAL FRACTURE [None]
  - OSTEOPENIA [None]
  - BACK PAIN [None]
  - FALL [None]
  - OSTEOPOROSIS [None]
  - MUSCLE SPASMS [None]
  - PAIN [None]
